FAERS Safety Report 12352553 (Version 2)
Quarter: 2016Q2

REPORT INFORMATION
  Report Type: Spontaneous
  Country: IT (occurrence: IT)
  Receive Date: 20160510
  Receipt Date: 20160525
  Transmission Date: 20160815
  Serious: Yes (Other)
  Sender: FDA-Public Use
  Company Number: PHHY2016IT060801

PATIENT
  Age: 43 Year
  Sex: Female

DRUGS (6)
  1. PANTORC [Suspect]
     Active Substance: PANTOPRAZOLE SODIUM
     Indication: PRODUCT USED FOR UNKNOWN INDICATION
     Route: 065
  2. XANAX [Suspect]
     Active Substance: ALPRAZOLAM
     Indication: ANXIETY
     Dosage: 50 MG, QD, IN MORNING
     Route: 065
  3. EUTIROX [Suspect]
     Active Substance: LEVOTHYROXINE SODIUM
     Indication: AUTOIMMUNE THYROIDITIS
     Dosage: 50 UG, QD
     Route: 065
  4. BISOPROLOL [Suspect]
     Active Substance: BISOPROLOL
     Indication: VENTRICULAR EXTRASYSTOLES
     Dosage: 1.25 MG, UNK
     Route: 065
  5. GAVISCON [Suspect]
     Active Substance: ALUMINUM HYDROXIDE\MAGNESIUM CARBONATE
     Indication: PRODUCT USED FOR UNKNOWN INDICATION
  6. PERIDON [Concomitant]
     Active Substance: DOMPERIDONE
     Indication: PRODUCT USED FOR UNKNOWN INDICATION
     Route: 065

REACTIONS (14)
  - Helicobacter test positive [Unknown]
  - Pyrexia [Unknown]
  - Dysentery [Unknown]
  - Dyspepsia [Unknown]
  - Influenza [Unknown]
  - Abdominal discomfort [Unknown]
  - Salivary hypersecretion [Unknown]
  - Intestinal intraepithelial lymphocytes increased [Unknown]
  - Dysgeusia [Unknown]
  - Throat irritation [Unknown]
  - Cough [Unknown]
  - Eructation [Unknown]
  - Anaemia [Unknown]
  - Dizziness [Unknown]
